FAERS Safety Report 18029284 (Version 3)
Quarter: 2020Q3

REPORT INFORMATION
  Report Type: Spontaneous
  Country: CN (occurrence: CN)
  Receive Date: 20200715
  Receipt Date: 20200721
  Transmission Date: 20201103
  Serious: Yes (Death, Life-Threatening, Hospitalization)
  Sender: FDA-Public Use
  Company Number: CN-BAYER-2020-139384

PATIENT
  Age: 64 Year
  Sex: Male

DRUGS (3)
  1. STIVARGA [Suspect]
     Active Substance: REGORAFENIB
     Indication: COLORECTAL CANCER
     Dosage: 3 DF, QD
     Route: 048
     Dates: start: 20200523, end: 20200529
  2. STIVARGA [Suspect]
     Active Substance: REGORAFENIB
     Indication: COLORECTAL CANCER
     Dosage: 4 DF, QD
     Route: 048
     Dates: start: 20200530, end: 2020
  3. STIVARGA [Suspect]
     Active Substance: REGORAFENIB
     Indication: COLORECTAL CANCER
     Dosage: 2 DF, QD
     Route: 048
     Dates: start: 20200516, end: 20200522

REACTIONS (10)
  - Drug ineffective [None]
  - Death [Fatal]
  - Impaired self-care [None]
  - Colorectal cancer [None]
  - Terminal state [None]
  - Decreased appetite [None]
  - Asthenia [None]
  - Depressed level of consciousness [Not Recovered/Not Resolved]
  - Off label use [None]
  - Pyrexia [Not Recovered/Not Resolved]

NARRATIVE: CASE EVENT DATE: 2020
